FAERS Safety Report 11117918 (Version 4)
Quarter: 2016Q2

REPORT INFORMATION
  Report Type: Report from Study
  Country: FR (occurrence: FR)
  Receive Date: 20150518
  Receipt Date: 20160526
  Transmission Date: 20160815
  Serious: Yes (Death, Hospitalization)
  Sender: FDA-Public Use
  Company Number: FR-ROCHE-1552760

PATIENT
  Age: 93 Year
  Sex: Male
  Weight: 78 kg

DRUGS (9)
  1. RITUXIMAB [Suspect]
     Active Substance: RITUXIMAB
     Indication: DIFFUSE LARGE B-CELL LYMPHOMA
     Dosage: CYCLE 3 DATE OF LAST DOSE PRIOR TO SAE: 16/FEB/2015
     Route: 058
     Dates: start: 20150126
  2. PREDNISONE. [Concomitant]
     Active Substance: PREDNISONE
     Route: 048
     Dates: start: 20150102, end: 20150102
  3. LENALIDOMIDE [Suspect]
     Active Substance: LENALIDOMIDE
     Indication: DIFFUSE LARGE B-CELL LYMPHOMA
     Dosage: CYCLE 3 DATE OF LAST DOSE PRIOR TO SAE: 22/FEB/2015
     Route: 048
     Dates: start: 20150105
  4. DOXORUBICINE [Concomitant]
     Active Substance: DOXORUBICIN
     Indication: DIFFUSE LARGE B-CELL LYMPHOMA
     Dosage: CYCLE 3
     Route: 042
     Dates: start: 20150105, end: 20150314
  5. VINCRISTINE [Concomitant]
     Active Substance: VINCRISTINE
     Route: 042
     Dates: start: 20150102, end: 20150102
  6. RITUXIMAB [Suspect]
     Active Substance: RITUXIMAB
     Indication: DIFFUSE LARGE B-CELL LYMPHOMA
     Dosage: CYCLE 1 AS PER PROTOCOL DATE OF LAST DOSE PRIOR TO SAE: 05/JAN/2015
     Route: 042
     Dates: start: 20150105
  7. PREDNISONE. [Concomitant]
     Active Substance: PREDNISONE
     Dosage: CYCLE 3
     Route: 048
     Dates: start: 20150102, end: 20150314
  8. VINCRISTINE [Concomitant]
     Active Substance: VINCRISTINE
     Route: 042
     Dates: start: 20150102, end: 20150314
  9. CYCLOPHOSPHAMIDE. [Concomitant]
     Active Substance: CYCLOPHOSPHAMIDE
     Indication: DIFFUSE LARGE B-CELL LYMPHOMA
     Dosage: CYCLE 3
     Route: 042
     Dates: start: 20150105, end: 20150314

REACTIONS (2)
  - General physical health deterioration [Fatal]
  - Bronchitis [Recovered/Resolved]

NARRATIVE: CASE EVENT DATE: 20150223
